FAERS Safety Report 8023328-5 (Version None)
Quarter: 2012Q1

REPORT INFORMATION
  Report Type: 
  Country: None (occurrence: None)
  Receive Date: 20120104
  Receipt Date: 20120103
  Transmission Date: 20120608
  Serious: Yes (Other)
  Sender: FDA-Public Use
  Company Number: US-ROCHE-468464

PATIENT
  Sex: Female
  Weight: 62.6 kg

DRUGS (2)
  1. ACCUTANE [Suspect]
     Route: 065
     Dates: start: 19850101, end: 19850101
  2. ACCUTANE [Suspect]
     Indication: ACNE CYSTIC
     Route: 065
     Dates: start: 19840101, end: 19840101

REACTIONS (18)
  - EPISTAXIS [None]
  - PALPITATIONS [None]
  - IRRITABLE BOWEL SYNDROME [None]
  - DIVERTICULITIS [None]
  - PANIC ATTACK [None]
  - OSTEOPOROSIS [None]
  - ANXIETY [None]
  - DEPRESSION [None]
  - INTERVERTEBRAL DISC DISORDER [None]
  - HEPATIC ENZYME INCREASED [None]
  - ARRHYTHMIA [None]
  - GASTRIC ULCER [None]
  - SUICIDAL IDEATION [None]
  - FUCHS' SYNDROME [None]
  - RECTAL ABSCESS [None]
  - GASTROINTESTINAL PAIN [None]
  - MEASLES [None]
  - COLITIS [None]
